FAERS Safety Report 4889500-8 (Version None)
Quarter: 2006Q1

REPORT INFORMATION
  Report Type: 
  Country: None (occurrence: None)
  Receive Date: 20060124
  Receipt Date: 20060116
  Transmission Date: 20060701
  Serious: Yes (Disabling, Other)
  Sender: FDA-Public Use
  Company Number: FR-AVENTIS-200610191FR

PATIENT
  Age: 53 Year
  Sex: Female

DRUGS (2)
  1. RIFADIN [Suspect]
     Indication: ARTHRITIS BACTERIAL
     Route: 048
     Dates: start: 20031201, end: 20040801
  2. RIFADIN [Suspect]
     Indication: STAPHYLOCOCCAL INFECTION
     Route: 048
     Dates: start: 20031201, end: 20040801

REACTIONS (2)
  - CONSTIPATION [None]
  - PARESIS ANAL SPHINCTER [None]
